FAERS Safety Report 8855040 (Version 3)
Quarter: 2013Q1

REPORT INFORMATION
  Report Type: Report from Study
  Country: PL (occurrence: PL)
  Receive Date: 20121023
  Receipt Date: 20130117
  Transmission Date: 20140127
  Serious: Yes (Hospitalization)
  Sender: FDA-Public Use
  Company Number: PL-BRISTOL-MYERS SQUIBB COMPANY-16917775

PATIENT
  Age: 53 Year
  Sex: Male
  Weight: 80 kg

DRUGS (4)
  1. CETUXIMAB [Suspect]
     Indication: NON-SMALL CELL LUNG CANCER
     Dosage: STRENGTH:5 MG/ML, 250MG/M2,NO OF INF:17
     Route: 042
     Dates: start: 20120419, end: 20120816
  2. CISPLATIN FOR INJ [Suspect]
     Indication: NON-SMALL CELL LUNG CANCER
     Dosage: RECENT DOSE ON 16AUG12, 21JUN12 NO OF INF:8
     Route: 042
     Dates: start: 20120419
  3. CILENGITIDE [Suspect]
     Indication: NON-SMALL CELL LUNG CANCER
     Dosage: ,NO OF INF:17
     Route: 042
     Dates: start: 20120419, end: 20120816
  4. VINORELBINE [Suspect]
     Indication: NON-SMALL CELL LUNG CANCER
     Dosage: DAY 1 AND DAY 8 OF EACH 3-WEEK CYCLE,RECENT DOSE ON 16AUG12, 28JUN12NO OF INF:8
     Route: 042
     Dates: start: 20120419

REACTIONS (1)
  - Central nervous system lesion [Not Recovered/Not Resolved]
